FAERS Safety Report 9149293 (Version 1)
Quarter: 2013Q1

REPORT INFORMATION
  Report Type: Spontaneous
  Country: FR (occurrence: FR)
  Receive Date: 20130308
  Receipt Date: 20130308
  Transmission Date: 20140127
  Serious: Yes (Other)
  Sender: FDA-Public Use
  Company Number: FR-PFIZER INC-2013072744

PATIENT
  Age: 78 Year
  Sex: Female

DRUGS (2)
  1. ARACYTINE [Suspect]
     Indication: ACUTE MYELOID LEUKAEMIA
     Dosage: 20 MG, 1X/DAY
     Route: 042
     Dates: start: 20130201, end: 20130210
  2. EVOLTRA [Suspect]
     Indication: ACUTE MYELOID LEUKAEMIA
     Dosage: 31.4 MG, 1X/DAY
     Route: 042
     Dates: start: 20130201, end: 20130205

REACTIONS (3)
  - Atrial tachycardia [Recovered/Resolved]
  - Hypotension [Recovered/Resolved]
  - Vasodilatation [Recovered/Resolved]
